FAERS Safety Report 25231375 (Version 1)
Quarter: 2025Q2

REPORT INFORMATION
  Report Type: Spontaneous
  Country: US (occurrence: US)
  Receive Date: 20250423
  Receipt Date: 20250423
  Transmission Date: 20250717
  Serious: Yes (Hospitalization, Other)
  Sender: BRISTOL-MYERS SQUIBB COMPANY
  Company Number: US-BRISTOL-MYERS SQUIBB COMPANY-2025-056287

PATIENT
  Age: 78 Year
  Weight: 67.13 kg

DRUGS (1)
  1. REVLIMID [Suspect]
     Active Substance: LENALIDOMIDE
     Indication: Product used for unknown indication
     Dosage: ONCE DAILY FOR 21 DAYS ON, 7 OFF
     Route: 048

REACTIONS (2)
  - Cardiac failure [Recovering/Resolving]
  - White blood cell count decreased [Recovering/Resolving]
